FAERS Safety Report 24317553 (Version 1)
Quarter: 2024Q3

REPORT INFORMATION
  Report Type: Report from Study
  Country: US (occurrence: US)
  Receive Date: 20240913
  Receipt Date: 20240913
  Transmission Date: 20241016
  Serious: Yes (Other)
  Sender: ABBVIE
  Company Number: US-ABBVIE-5919652

PATIENT
  Age: 53 Year
  Sex: Female

DRUGS (1)
  1. SKYRIZI [Suspect]
     Active Substance: RISANKIZUMAB-RZAA
     Indication: Psoriasis
     Route: 058
     Dates: start: 20221213

REACTIONS (6)
  - Clavicle fracture [Unknown]
  - Arthralgia [Unknown]
  - Back pain [Unknown]
  - Skin discolouration [Unknown]
  - Traumatic arthropathy [Unknown]
  - Road traffic accident [Unknown]

NARRATIVE: CASE EVENT DATE: 20240616
